FAERS Safety Report 17573676 (Version 6)
Quarter: 2020Q3

REPORT INFORMATION
  Report Type: Report from Study
  Country: None (occurrence: US)
  Receive Date: 20200323
  Receipt Date: 20200709
  Transmission Date: 20201102
  Serious: Yes (Life-Threatening, Hospitalization)
  Sender: FDA-Public Use
  Company Number: US-ABBVIE-20P-163-3324192-00

PATIENT
  Age: 46 Year
  Sex: Male

DRUGS (77)
  1. ABT?263 [Suspect]
     Active Substance: NAVITOCLAX
     Indication: ACUTE LYMPHOCYTIC LEUKAEMIA RECURRENT
     Route: 048
     Dates: start: 20180704, end: 20191216
  2. NORMAL SALINE SOLUTION (0.9% SODIUM CHLORIDE) [Concomitant]
     Indication: PROPHYLAXIS
     Route: 042
     Dates: start: 20180701, end: 20180710
  3. PEPCID [Concomitant]
     Active Substance: FAMOTIDINE
     Indication: ANTACID THERAPY
     Route: 048
     Dates: start: 20171030
  4. ZOFRAN [Concomitant]
     Active Substance: ONDANSETRON HYDROCHLORIDE
     Indication: NAUSEA
     Route: 042
     Dates: start: 20180702, end: 20180705
  5. NOXAFIL [Concomitant]
     Active Substance: POSACONAZOLE
     Indication: PNEUMONIA
     Route: 048
     Dates: start: 20180802
  6. ELIQUIS [Concomitant]
     Active Substance: APIXABAN
     Indication: EMBOLISM
     Dosage: AS DIRECTED
     Route: 048
     Dates: start: 20180921
  7. TYLENOL [Concomitant]
     Active Substance: ACETAMINOPHEN
     Indication: PREMEDICATION
     Route: 048
     Dates: start: 20180720, end: 20180720
  8. TYLENOL [Concomitant]
     Active Substance: ACETAMINOPHEN
     Route: 048
     Dates: start: 2018
  9. VENETOCLAX. [Suspect]
     Active Substance: VENETOCLAX
     Route: 048
     Dates: start: 20191204, end: 20191216
  10. ZYRTEC [Concomitant]
     Active Substance: CETIRIZINE HYDROCHLORIDE
     Indication: ALLERGY PROPHYLAXIS
     Route: 048
     Dates: start: 20181112
  11. MS CONTIN [Concomitant]
     Active Substance: MORPHINE SULFATE
     Route: 048
     Dates: start: 20180703, end: 20180711
  12. MS CONTIN [Concomitant]
     Active Substance: MORPHINE SULFATE
     Route: 048
     Dates: start: 20180719, end: 20180722
  13. MS CONTIN [Concomitant]
     Active Substance: MORPHINE SULFATE
     Route: 048
     Dates: start: 20180522, end: 20180630
  14. ATIVAN [Concomitant]
     Active Substance: LORAZEPAM
     Indication: VOMITING
     Dosage: NIGHTLY PRN
     Route: 048
     Dates: start: 20180803
  15. ATIVAN [Concomitant]
     Active Substance: LORAZEPAM
     Indication: ANXIETY
     Route: 048
     Dates: start: 20180919, end: 20180919
  16. ATIVAN [Concomitant]
     Active Substance: LORAZEPAM
     Indication: INSOMNIA
  17. MIRALAX [Concomitant]
     Active Substance: POLYETHYLENE GLYCOL 3350
     Indication: CONSTIPATION PROPHYLAXIS
     Route: 048
     Dates: start: 20180712
  18. MIRALAX [Concomitant]
     Active Substance: POLYETHYLENE GLYCOL 3350
     Route: 048
     Dates: start: 20180726, end: 20180726
  19. SENOKOT?S [Concomitant]
     Active Substance: DOCUSATE SODIUM\SENNOSIDES
     Route: 048
     Dates: start: 20180726, end: 20180727
  20. ULTRAM [Concomitant]
     Active Substance: TRAMADOL HYDROCHLORIDE
     Indication: NON-CARDIAC CHEST PAIN
     Route: 048
     Dates: start: 20180706
  21. VIAGRA [Concomitant]
     Active Substance: SILDENAFIL CITRATE
     Indication: ORGASM ABNORMAL
     Route: 048
     Dates: start: 2018
  22. VINCRISTINE [Suspect]
     Active Substance: VINCRISTINE
     Indication: ACUTE LYMPHOCYTIC LEUKAEMIA RECURRENT
     Route: 048
     Dates: start: 20180710, end: 20180730
  23. ALLOPURINOL. [Concomitant]
     Active Substance: ALLOPURINOL
     Indication: PROPHYLAXIS
     Route: 048
     Dates: start: 20180701, end: 20180711
  24. NOXAFIL [Concomitant]
     Active Substance: POSACONAZOLE
     Route: 048
     Dates: start: 20180801, end: 20180803
  25. MEGACE [Concomitant]
     Active Substance: MEGESTROL ACETATE
     Indication: DECREASED APPETITE
     Route: 048
     Dates: start: 20180820
  26. ATIVAN [Concomitant]
     Active Substance: LORAZEPAM
     Indication: NAUSEA
     Route: 048
     Dates: start: 20180522, end: 20180803
  27. LIORESAL [Concomitant]
     Active Substance: BACLOFEN
     Indication: HICCUPS
     Route: 048
     Dates: start: 20180711
  28. PEGASPARAGINASE [Suspect]
     Active Substance: PEGASPARGASE
     Indication: ACUTE LYMPHOCYTIC LEUKAEMIA RECURRENT
     Dosage: 1250 IU/M2
     Route: 042
     Dates: start: 20180710, end: 20180710
  29. ZOVIRAX [Concomitant]
     Active Substance: ACYCLOVIR
     Indication: ANTIVIRAL PROPHYLAXIS
     Route: 048
     Dates: start: 20200123, end: 20200123
  30. MARINOL [Concomitant]
     Active Substance: DRONABINOL
     Indication: DECREASED APPETITE
     Route: 048
     Dates: start: 20180607
  31. ZOFRAN [Concomitant]
     Active Substance: ONDANSETRON HYDROCHLORIDE
     Route: 042
     Dates: start: 20180709, end: 20180711
  32. NOXAFIL [Concomitant]
     Active Substance: POSACONAZOLE
     Indication: ANTIFUNGAL PROPHYLAXIS
     Route: 048
     Dates: start: 20170511, end: 20180622
  33. MS CONTIN [Concomitant]
     Active Substance: MORPHINE SULFATE
     Route: 048
     Dates: start: 20180724, end: 20180803
  34. MS CONTIN [Concomitant]
     Active Substance: MORPHINE SULFATE
     Route: 048
     Dates: start: 20180804, end: 20180810
  35. MS CONTIN [Concomitant]
     Active Substance: MORPHINE SULFATE
     Route: 048
     Dates: start: 20181217
  36. MSIR [Concomitant]
     Active Substance: MORPHINE SULFATE
     Indication: CHEST PAIN
     Route: 048
     Dates: start: 20180702, end: 20180702
  37. SENOKOT?S [Concomitant]
     Active Substance: DOCUSATE SODIUM\SENNOSIDES
     Indication: CONSTIPATION
     Route: 048
     Dates: start: 20180701, end: 20180702
  38. SENOKOT?S [Concomitant]
     Active Substance: DOCUSATE SODIUM\SENNOSIDES
     Route: 048
     Dates: start: 20180702, end: 20180711
  39. TYLENOL [Concomitant]
     Active Substance: ACETAMINOPHEN
     Route: 048
     Dates: start: 20180827, end: 20180827
  40. VENETOCLAX. [Suspect]
     Active Substance: VENETOCLAX
     Indication: ACUTE LYMPHOCYTIC LEUKAEMIA RECURRENT
     Route: 048
     Dates: start: 20180702, end: 20180702
  41. VENETOCLAX. [Suspect]
     Active Substance: VENETOCLAX
     Route: 048
     Dates: start: 20180828, end: 20190820
  42. VENETOCLAX. [Suspect]
     Active Substance: VENETOCLAX
     Route: 048
     Dates: start: 20200212
  43. DEXAMETHASONE. [Suspect]
     Active Substance: DEXAMETHASONE
     Route: 048
     Dates: start: 20191204, end: 20191207
  44. PEGASPARAGINASE [Suspect]
     Active Substance: PEGASPARGASE
     Route: 042
     Dates: start: 20191204, end: 20191204
  45. ZOVIRAX [Concomitant]
     Active Substance: ACYCLOVIR
     Route: 048
     Dates: start: 20180508
  46. ZYLOPRIM [Concomitant]
     Active Substance: ALLOPURINOL
     Indication: PROPHYLAXIS
     Route: 048
     Dates: start: 20180701
  47. ZOFRAN [Concomitant]
     Active Substance: ONDANSETRON HYDROCHLORIDE
     Route: 048
     Dates: start: 20180711
  48. BACTRIM DS [Concomitant]
     Active Substance: SULFAMETHOXAZOLE\TRIMETHOPRIM
     Dosage: MON, WEDS, FRI
     Route: 048
     Dates: start: 20180702, end: 20180711
  49. PROBIOTIC?10 [Concomitant]
     Indication: PROBIOTIC THERAPY
     Route: 048
     Dates: start: 20181112
  50. LOPRESSOR [Concomitant]
     Active Substance: METOPROLOL TARTRATE
     Indication: HYPERTENSION
     Route: 048
     Dates: start: 20180817, end: 20180905
  51. MS CONTIN [Concomitant]
     Active Substance: MORPHINE SULFATE
     Indication: CHEST PAIN
     Route: 048
     Dates: start: 20180701, end: 20180701
  52. COMPAZINE [Concomitant]
     Active Substance: PROCHLORPERAZINE MALEATE
     Indication: NAUSEA
     Route: 048
     Dates: start: 20180627
  53. BACTRIM DS [Concomitant]
     Active Substance: SULFAMETHOXAZOLE\TRIMETHOPRIM
     Indication: ANTIBIOTIC PROPHYLAXIS
     Dosage: 2 TIMES DAILY MON, WEDS, FRI
     Route: 048
     Dates: start: 20180720, end: 20180803
  54. BACTRIM DS [Concomitant]
     Active Substance: SULFAMETHOXAZOLE\TRIMETHOPRIM
     Route: 048
     Dates: start: 20180803, end: 20180826
  55. BACTRIM DS [Concomitant]
     Active Substance: SULFAMETHOXAZOLE\TRIMETHOPRIM
     Dosage: MON, WEDS, FRI
     Route: 048
     Dates: start: 20180502, end: 20180803
  56. BACTRIM DS [Concomitant]
     Active Substance: SULFAMETHOXAZOLE\TRIMETHOPRIM
     Dosage: MON, WEDS, FRI
     Route: 048
     Dates: start: 20180827
  57. TYLENOL [Concomitant]
     Active Substance: ACETAMINOPHEN
     Indication: ANTIPYRESIS
     Route: 048
     Dates: start: 20180721, end: 20180721
  58. TYLENOL [Concomitant]
     Active Substance: ACETAMINOPHEN
     Route: 048
     Dates: start: 20180728, end: 20180806
  59. VENETOCLAX. [Suspect]
     Active Substance: VENETOCLAX
     Route: 048
     Dates: start: 20180703, end: 20180729
  60. ABT?263 [Suspect]
     Active Substance: NAVITOCLAX
     Route: 048
     Dates: start: 20200212
  61. VINCRISTINE [Suspect]
     Active Substance: VINCRISTINE
     Route: 048
     Dates: start: 20191204, end: 20191204
  62. NOXAFIL [Concomitant]
     Active Substance: POSACONAZOLE
     Indication: ANTIFUNGAL TREATMENT
     Route: 048
     Dates: start: 20180731, end: 20180801
  63. LOPRESSOR [Concomitant]
     Active Substance: METOPROLOL TARTRATE
     Route: 048
     Dates: start: 20181026
  64. MS CONTIN [Concomitant]
     Active Substance: MORPHINE SULFATE
     Route: 048
     Dates: start: 20180702, end: 20180702
  65. GUAIFENESIN AC [Concomitant]
     Active Substance: CODEINE PHOSPHATE\GUAIFENESIN
     Indication: COUGH
     Route: 048
     Dates: start: 20180820
  66. MIRALAX [Concomitant]
     Active Substance: POLYETHYLENE GLYCOL 3350
     Indication: CONSTIPATION
     Route: 048
     Dates: start: 20180703, end: 20180711
  67. MSIR [Concomitant]
     Active Substance: MORPHINE SULFATE
     Indication: BACK PAIN
     Route: 048
     Dates: start: 20180709
  68. DEXAMETHASONE. [Suspect]
     Active Substance: DEXAMETHASONE
     Indication: ACUTE LYMPHOCYTIC LEUKAEMIA RECURRENT
     Route: 048
     Dates: start: 20180710, end: 20180924
  69. PEGASPARAGINASE [Suspect]
     Active Substance: PEGASPARGASE
     Dosage: 1250 IU/M2
     Route: 042
     Dates: start: 20180723, end: 20180723
  70. ZOFRAN [Concomitant]
     Active Substance: ONDANSETRON HYDROCHLORIDE
     Route: 042
     Dates: start: 20180723, end: 20180802
  71. MS CONTIN [Concomitant]
     Active Substance: MORPHINE SULFATE
     Route: 048
     Dates: start: 20180712, end: 20180718
  72. ACCUNEB [Concomitant]
     Active Substance: ALBUTEROL SULFATE
     Indication: DYSPNOEA
     Dosage: NEBULIZATION
     Dates: start: 20180820
  73. ATIVAN [Concomitant]
     Active Substance: LORAZEPAM
     Indication: PREMEDICATION
  74. SENOKOT?S [Concomitant]
     Active Substance: DOCUSATE SODIUM\SENNOSIDES
     Dosage: 1?2 TABLET
     Route: 048
     Dates: start: 20180706
  75. TYLENOL [Concomitant]
     Active Substance: ACETAMINOPHEN
     Indication: PYREXIA
     Route: 048
     Dates: start: 20180718, end: 20180718
  76. TYLENOL [Concomitant]
     Active Substance: ACETAMINOPHEN
     Route: 048
     Dates: start: 20180719, end: 20180727
  77. ULTRAM [Concomitant]
     Active Substance: TRAMADOL HYDROCHLORIDE
     Indication: BACK PAIN
     Route: 048
     Dates: start: 20180724, end: 20180724

REACTIONS (1)
  - Skin infection [Recovered/Resolved]

NARRATIVE: CASE EVENT DATE: 20200313
